FAERS Safety Report 4806743-X (Version None)
Quarter: 2005Q4

REPORT INFORMATION
  Report Type: 
  Country: None (occurrence: None)
  Receive Date: 20051019
  Receipt Date: 20050707
  Transmission Date: 20060501
  Serious: Yes (Other)
  Sender: FDA-Public Use
  Company Number: EWC051046315

PATIENT
  Age: 48 Year
  Sex: Male
  Weight: 62 kg

DRUGS (6)
  1. GEMCITABINE HYDROCHLORIDE-IV (GEMCITABINE) [Suspect]
     Indication: NON-SMALL CELL LUNG CANCER
     Dosage: 2100 MG OTHER
     Dates: start: 20041220, end: 20050125
  2. NAVELBINE [Suspect]
     Indication: NON-SMALL CELL LUNG CANCER
     Dosage: 44 MG OTHER
     Dates: start: 20041220, end: 20050125
  3. AZEMET (DOLASETRON MESILATE) [Concomitant]
  4. MACPERAN (METOCLOPRAMIDE) [Concomitant]
  5. OXYCONTIN [Concomitant]
  6. TRANSAMIN (TRANEXAMIC ACID) [Concomitant]

REACTIONS (3)
  - HAEMOPTYSIS [None]
  - NAUSEA [None]
  - VOMITING [None]
